FAERS Safety Report 4354534-9 (Version None)
Quarter: 2004Q2

REPORT INFORMATION
  Report Type: 
  Country: None (occurrence: None)
  Receive Date: 20040503
  Receipt Date: 20040422
  Transmission Date: 20050107
  Serious: No
  Sender: FDA-Public Use
  Company Number: US-SHR-04-021818

PATIENT
  Age: 67 Year
  Sex: Female
  Weight: 81.6 kg

DRUGS (8)
  1. BETASERON [Suspect]
     Indication: MULTIPLE SCLEROSIS
     Dosage: 8 MIU, EVERY 2D, SUBCUTANEOUS
     Route: 058
     Dates: start: 20040206
  2. PAXIL [Concomitant]
  3. KLOR-CON [Concomitant]
  4. ALDACTONE [Concomitant]
  5. TRICOR [Concomitant]
  6. SYNTHROID [Concomitant]
  7. CELEBREX [Concomitant]
  8. GAMAFLEX (PHENPROBAMATE) [Concomitant]

REACTIONS (1)
  - GASTROOESOPHAGEAL REFLUX DISEASE [None]
